FAERS Safety Report 4369135-6 (Version None)
Quarter: 2004Q2

REPORT INFORMATION
  Report Type: 
  Country: None (occurrence: None)
  Receive Date: 20040527
  Receipt Date: 20040514
  Transmission Date: 20050107
  Serious: Yes (Hospitalization)
  Sender: FDA-Public Use
  Company Number: 2004015528

PATIENT
  Age: 51 Year
  Sex: Female

DRUGS (1)
  1. ZYRTEC [Suspect]
     Indication: HYPERSENSITIVITY

REACTIONS (3)
  - BLOOD GLUCOSE INCREASED [None]
  - DIABETIC COMPLICATION [None]
  - TRANSIENT ISCHAEMIC ATTACK [None]
